FAERS Safety Report 16957395 (Version 2)
Quarter: 2019Q4

REPORT INFORMATION
  Report Type: Spontaneous
  Country: US (occurrence: US)
  Receive Date: 20191024
  Receipt Date: 20191113
  Transmission Date: 20200122
  Serious: No
  Sender: FDA-Public Use
  Company Number: US-THERATECHNOLOGIES INC.-2019-THE-IBA-000034

PATIENT

DRUGS (1)
  1. TROGARZO [Suspect]
     Active Substance: IBALIZUMAB-UIYK
     Indication: PRODUCT USED FOR UNKNOWN INDICATION
     Dosage: UNK
     Route: 042

REACTIONS (2)
  - Headache [Recovered/Resolved]
  - Fatigue [Unknown]
